FAERS Safety Report 10178192 (Version 4)
Quarter: 2014Q3

REPORT INFORMATION
  Report Type: Spontaneous
  Country: ES (occurrence: ES)
  Receive Date: 20140519
  Receipt Date: 20140807
  Transmission Date: 20150326
  Serious: Yes (Other)
  Sender: FDA-Public Use
  Company Number: ES-AMGEN INC.-ESPSP2014008854

PATIENT
  Age: 10 Year
  Sex: Male

DRUGS (9)
  1. METOJECT [Suspect]
     Active Substance: METHOTREXATE SODIUM
     Dosage: 10 MG/0.20/WEEKLY
     Route: 065
     Dates: start: 20140508
  2. FOLIC ACID. [Concomitant]
     Active Substance: FOLIC ACID
     Dosage: UNK, ONCE A WEEK (12 HOURS AFTER METOJECT)
  3. ENBREL [Suspect]
     Active Substance: ETANERCEPT
     Dosage: 0.7 ML, ONCE WEEKLY (ON WEDNESDAYS)
     Route: 065
     Dates: start: 20140409, end: 2014
  4. ENBREL [Suspect]
     Active Substance: ETANERCEPT
     Dosage: 0.8 ML, WEEKLY
     Route: 065
     Dates: start: 20140508
  5. METOJECT [Suspect]
     Active Substance: METHOTREXATE SODIUM
     Indication: JUVENILE IDIOPATHIC ARTHRITIS
     Dosage: 15 MG/0.30 ML, ONCE WEEKLY
     Route: 065
     Dates: start: 201305
  6. SAIZEN [Concomitant]
     Active Substance: SOMATROPIN
     Indication: BLOOD GROWTH HORMONE
     Dosage: 0.90 MG, DAILY
  7. OMEPRAZOL                          /00661201/ [Concomitant]
     Active Substance: OMEPRAZOLE
     Indication: PROPHYLAXIS AGAINST GASTROINTESTINAL ULCER
     Dosage: 20 MG, 1X/DAY
  8. DALSY [Concomitant]
     Indication: PAIN
     Dosage: UNK UNK, AS NECESSARY
  9. ENBREL [Suspect]
     Active Substance: ETANERCEPT
     Indication: JUVENILE IDIOPATHIC ARTHRITIS
     Dosage: 0.7 ML, ONCE WEEKLY
     Route: 065
     Dates: start: 20140122, end: 2014

REACTIONS (25)
  - Spondylitis [Unknown]
  - Laboratory test abnormal [Unknown]
  - Constipation [Recovered/Resolved]
  - Injection site pain [Not Recovered/Not Resolved]
  - Nausea [Not Recovered/Not Resolved]
  - Tonsillitis [Recovered/Resolved]
  - Pyrexia [Recovered/Resolved]
  - Abdominal pain [Recovered/Resolved]
  - Inflammation [Unknown]
  - Mycobacterium tuberculosis complex test positive [Not Recovered/Not Resolved]
  - Back pain [Recovered/Resolved]
  - Appendicitis [Unknown]
  - Headache [Not Recovered/Not Resolved]
  - Arthralgia [Not Recovered/Not Resolved]
  - Secretion discharge [Not Recovered/Not Resolved]
  - Feeling abnormal [Unknown]
  - Vomiting [Unknown]
  - Pain [Not Recovered/Not Resolved]
  - Face oedema [Recovered/Resolved]
  - Fatigue [Not Recovered/Not Resolved]
  - Decreased immune responsiveness [Not Recovered/Not Resolved]
  - Oral disorder [Recovered/Resolved]
  - Dizziness [Not Recovered/Not Resolved]
  - Pain in extremity [Not Recovered/Not Resolved]
  - Joint range of motion decreased [Unknown]

NARRATIVE: CASE EVENT DATE: 201310
